FAERS Safety Report 23624337 (Version 2)
Quarter: 2024Q2

REPORT INFORMATION
  Report Type: Spontaneous
  Country: US (occurrence: US)
  Receive Date: 20240312
  Receipt Date: 20240627
  Transmission Date: 20240716
  Serious: No
  Sender: FDA-Public Use
  Company Number: US-SA-SAC20240307000178

PATIENT
  Age: 11 Year
  Sex: Male
  Weight: 32.1 kg

DRUGS (6)
  1. DUPIXENT [Suspect]
     Active Substance: DUPILUMAB
     Indication: Dermatitis atopic
     Dosage: 200 MG, QOW
     Route: 058
     Dates: start: 202303
  2. MIRALAX [Concomitant]
     Active Substance: POLYETHYLENE GLYCOL 3350
  3. MIRALAX [Concomitant]
     Active Substance: POLYETHYLENE GLYCOL 3350
  4. GABAPENTIN [Concomitant]
     Active Substance: GABAPENTIN
  5. GABAPENTIN [Concomitant]
     Active Substance: GABAPENTIN
  6. VYJUVEK [Concomitant]
     Active Substance: BEREMAGENE GEPERPAVEC-SVDT

REACTIONS (5)
  - Blister [Not Recovered/Not Resolved]
  - Skin disorder [Not Recovered/Not Resolved]
  - Condition aggravated [Not Recovered/Not Resolved]
  - Pruritus [Not Recovered/Not Resolved]
  - Eczema [Recovering/Resolving]

NARRATIVE: CASE EVENT DATE: 20240101
